FAERS Safety Report 5829834-3 (Version None)
Quarter: 2008Q3

REPORT INFORMATION
  Report Type: 
  Country: None (occurrence: None)
  Receive Date: 20080801
  Receipt Date: 20080723
  Transmission Date: 20090109
  Serious: Yes (Other)
  Sender: FDA-Public Use
  Company Number: US-TYCO HEALTHCARE/MALLINCKRODT-T200701627

PATIENT

DRUGS (36)
  1. OPTIMARK [Suspect]
     Indication: NUCLEAR MAGNETIC RESONANCE IMAGING
     Dosage: 20 ML, SINGLE
     Route: 042
     Dates: start: 20060126, end: 20060126
  2. OPTIMARK [Suspect]
     Indication: NUCLEAR MAGNETIC RESONANCE IMAGING BRAIN
     Dosage: 20 ML, SINGLE
     Route: 042
     Dates: start: 20060918, end: 20060918
  3. OPTIMARK [Suspect]
     Dosage: 20 ML, SINGLE
     Dates: start: 20051202, end: 20051202
  4. MAGNEVIST [Suspect]
     Indication: SCAN
     Dosage: 20 ML, SINGLE
     Dates: start: 20051104, end: 20051104
  5. GADOLINIUM [Suspect]
     Indication: NUCLEAR MAGNETIC RESONANCE IMAGING
     Dosage: UNK, SINGLE
     Route: 042
     Dates: start: 20011102, end: 20011102
  6. GADOLINIUM [Suspect]
     Dosage: UNK, SINGLE
     Route: 042
     Dates: start: 20020121, end: 20020121
  7. GADOLINIUM [Suspect]
     Dosage: UNK, SINGLE
     Route: 042
     Dates: start: 20030728, end: 20030728
  8. GADOLINIUM [Suspect]
     Dosage: 20 ML, SINGLE
     Route: 042
     Dates: start: 20050309, end: 20050309
  9. GADOLINIUM [Suspect]
     Dosage: UNK, SINGLE
     Route: 042
     Dates: start: 20051227, end: 20051227
  10. OMNISCAN [Suspect]
     Indication: SCAN
  11. MULTIHANCE [Suspect]
     Indication: SCAN
  12. PROHANCE [Suspect]
     Indication: SCAN
  13. CLONIDINE [Concomitant]
     Indication: HYPERTENSION
     Dosage: 1 MG, BID
  14. METOPROLOL [Concomitant]
     Indication: HYPERTENSION
     Dosage: 100 MG, QD
  15. NIFEDIPINE [Concomitant]
     Indication: HYPERTENSION
     Dosage: 60 MG, QD
  16. LYRICA [Concomitant]
     Indication: FIBROMYALGIA
     Dosage: 75 MG, BID
  17. LYRICA [Concomitant]
     Indication: PAIN
  18. REGULAR INSULIN [Concomitant]
     Indication: DIABETES MELLITUS
     Dosage: UNK, TID
  19. LENTE INSULIN [Concomitant]
     Indication: DIABETES MELLITUS
     Dosage: UNK, QD
  20. XALATAN [Concomitant]
     Indication: EYE DISORDER
     Dosage: UNK, QD
  21. DEXFOL [Concomitant]
     Indication: SUPPLEMENTATION THERAPY
     Dosage: 2 TABS, QD
     Dates: start: 20020601
  22. PREDNISONE [Concomitant]
     Indication: PROPHYLAXIS AGAINST TRANSPLANT REJECTION
     Dosage: 10 MG, QD
     Dates: start: 20071001
  23. TRAZODONE HCL [Concomitant]
     Indication: SLEEP DISORDER
     Dosage: 50 MG, QD
  24. SLOW-MAG                           /00438001/ [Concomitant]
     Indication: MINERAL SUPPLEMENTATION
     Dosage: 4 TABS, QD
  25. VITAMIN A [Concomitant]
     Indication: VITAMIN SUPPLEMENTATION
     Dosage: 800 IU, QD
  26. PROGRAF [Concomitant]
     Indication: PROPHYLAXIS AGAINST TRANSPLANT REJECTION
     Dosage: 3 CAPSULES, QD
  27. PROGRAF [Concomitant]
     Dosage: 4 CAPSULES, QD
  28. MYFORTIC [Concomitant]
     Indication: PROPHYLAXIS AGAINST TRANSPLANT REJECTION
     Dosage: 4 TABS, BID
  29. FOLBEE PLUS [Concomitant]
     Indication: VITAMIN SUPPLEMENTATION
     Dates: start: 20020601
  30. NEPHROCAPS [Concomitant]
     Indication: SUPPLEMENTATION THERAPY
  31. ANTIBIOTICS [Concomitant]
     Indication: INFECTION
  32. DARVOCET                           /00220901/ [Concomitant]
     Indication: ANALGESIA
  33. PERCOCET [Concomitant]
     Indication: ANALGESIA
  34. IRON SULFATETHIAMIN COMPOUND TAB [Concomitant]
     Indication: MINERAL SUPPLEMENTATION
     Dates: start: 20020601, end: 20071001
  35. EPOGEN [Concomitant]
     Indication: DIALYSIS
     Dates: start: 20020601, end: 20071001
  36. EPOGEN [Concomitant]
     Indication: SUPPLEMENTATION THERAPY

REACTIONS (1)
  - NEPHROGENIC SYSTEMIC FIBROSIS [None]
